FAERS Safety Report 24648044 (Version 1)
Quarter: 2024Q4

REPORT INFORMATION
  Report Type: Spontaneous
  Country: US (occurrence: US)
  Receive Date: 20241121
  Receipt Date: 20241121
  Transmission Date: 20250115
  Serious: Yes (Other)
  Sender: SANOFI AVENTIS
  Company Number: US-SA-2024SA338544

PATIENT
  Age: 14 Year
  Sex: Male

DRUGS (1)
  1. RIFAMPIN [Suspect]
     Active Substance: RIFAMPIN
     Indication: Latent tuberculosis
     Dosage: UNK

REACTIONS (11)
  - Pigment nephropathy [Recovering/Resolving]
  - Oliguria [Recovering/Resolving]
  - Renal tubular injury [Recovering/Resolving]
  - Proteinuria [Recovering/Resolving]
  - Inflammation [Recovering/Resolving]
  - Haemolytic anaemia [Unknown]
  - Haematuria [Unknown]
  - Hepatocellular injury [Unknown]
  - Abdominal pain [Unknown]
  - Vomiting [Unknown]
  - Treatment noncompliance [Unknown]
